FAERS Safety Report 6983181-5 (Version None)
Quarter: 2010Q3

REPORT INFORMATION
  Report Type: 
  Country: None (occurrence: None)
  Receive Date: 20100914
  Receipt Date: 20100719
  Transmission Date: 20110219
  Serious: No
  Sender: FDA-Public Use
  Company Number: US-PFIZER INC-2010072429

PATIENT
  Sex: Male
  Weight: 76.19 kg

DRUGS (5)
  1. LYRICA [Suspect]
     Indication: FIBROMYALGIA
     Dosage: 50 MG, 3X/DAY
     Route: 048
     Dates: start: 20100501
  2. LYRICA [Suspect]
     Dosage: 50 MG, 4X/DAY
  3. SYNTHROID [Concomitant]
     Indication: HYPERTHYROIDISM
     Dosage: UNK
  4. VALSARTAN [Concomitant]
     Dosage: UNK
  5. NORVASC [Concomitant]
     Dosage: UNK

REACTIONS (3)
  - INAPPROPRIATE SCHEDULE OF DRUG ADMINISTRATION [None]
  - PAIN IN EXTREMITY [None]
  - PARAESTHESIA ORAL [None]
